FAERS Safety Report 4269815-7 (Version None)
Quarter: 2004Q1

REPORT INFORMATION
  Report Type: 
  Country: None (occurrence: None)
  Receive Date: 20040112
  Receipt Date: 20000317
  Transmission Date: 20041129
  Serious: No
  Sender: FDA-Public Use
  Company Number: 7026

PATIENT
  Age: 64 Year
  Sex: Male

DRUGS (6)
  1. DOXYCYCLINE [Suspect]
     Indication: SINUSITIS
     Route: 048
     Dates: start: 19990813, end: 19990820
  2. SILDENAFIL [Concomitant]
  3. METFORMIN HCL [Concomitant]
  4. GLYBURIDE [Concomitant]
  5. ASPIRIN [Concomitant]
  6. ATENOLOL [Concomitant]

REACTIONS (4)
  - DIPLOPIA [None]
  - DIZZINESS [None]
  - LABYRINTHITIS [None]
  - NYSTAGMUS [None]
